FAERS Safety Report 16333703 (Version 4)
Quarter: 2019Q3

REPORT INFORMATION
  Report Type: Spontaneous
  Country: US (occurrence: US)
  Receive Date: 20190520
  Receipt Date: 20190702
  Transmission Date: 20191004
  Serious: Yes (Other)
  Sender: FDA-Public Use
  Company Number: US-JNJFOC-20190441072

PATIENT
  Age: 57 Year
  Sex: Female

DRUGS (2)
  1. PARACETAMOL [Suspect]
     Active Substance: ACETAMINOPHEN
     Indication: PRODUCT USED FOR UNKNOWN INDICATION
     Route: 065
  2. HUMIRA [Suspect]
     Active Substance: ADALIMUMAB
     Indication: RHEUMATOID ARTHRITIS
     Dosage: 40 MG ,1 IN 2
     Route: 058
     Dates: start: 20190226

REACTIONS (9)
  - Gait disturbance [Not Recovered/Not Resolved]
  - Joint swelling [Recovering/Resolving]
  - Pain [Recovering/Resolving]
  - Paraesthesia [Not Recovered/Not Resolved]
  - Diverticulitis [Recovering/Resolving]
  - Chills [Unknown]
  - Arthralgia [Recovering/Resolving]
  - Fatigue [Unknown]
  - Joint stiffness [Unknown]

NARRATIVE: CASE EVENT DATE: 2019
